FAERS Safety Report 11417177 (Version 1)
Quarter: 2015Q3

REPORT INFORMATION
  Report Type: Report from Study
  Country: US (occurrence: US)
  Receive Date: 20150825
  Receipt Date: 20150825
  Transmission Date: 20151125
  Serious: Yes (Other)
  Sender: FDA-Public Use
  Company Number: US-TAKEDA-2015TUS011153

PATIENT

DRUGS (4)
  1. TREPILINE                          /00002201/ [Concomitant]
     Dosage: 50 MG, UNK
  2. RIVOTRIL [Concomitant]
     Active Substance: CLONAZEPAM
     Indication: BRUXISM
  3. VORTIOXETINE [Suspect]
     Active Substance: VORTIOXETINE
     Indication: PRODUCT USED FOR UNKNOWN INDICATION
     Dosage: UNK
     Route: 065
  4. TREPILINE                          /00002201/ [Concomitant]
     Dosage: 10 MG, UNK

REACTIONS (5)
  - Anxiety [Unknown]
  - Fatigue [Unknown]
  - Feeling abnormal [Unknown]
  - Homicidal ideation [Unknown]
  - Crying [Unknown]
